FAERS Safety Report 6499182-X (Version None)
Quarter: 2009Q4

REPORT INFORMATION
  Report Type: 
  Country: None (occurrence: None)
  Receive Date: 20091127
  Receipt Date: 20081029
  Transmission Date: 20100525
  Serious: Yes (Disabling)
  Sender: FDA-Public Use
  Company Number: WAES 0807USA00757

PATIENT
  Age: 47 Year
  Sex: Female
  Weight: 63.5036 kg

DRUGS (2)
  1. FOSAMAX [Suspect]
     Indication: OSTEOPENIA
     Dosage: 70 MG/WKY/PO
     Route: 048
     Dates: start: 20020308, end: 20060706
  2. THERAPY UNSPECIFIED [Concomitant]

REACTIONS (5)
  - DERMATITIS ALLERGIC [None]
  - GINGIVAL RECESSION [None]
  - OSTEONECROSIS [None]
  - PULPITIS DENTAL [None]
  - SKIN LESION [None]
